FAERS Safety Report 7312909-X (Version None)
Quarter: 2011Q1

REPORT INFORMATION
  Report Type: 
  Country: None (occurrence: None)
  Receive Date: 20110224
  Receipt Date: 20110215
  Transmission Date: 20110831
  Serious: Yes (Life-Threatening, Hospitalization)
  Sender: FDA-Public Use
  Company Number: GB-MERCK-1102GBR00031

PATIENT
  Age: 65 Year
  Sex: Male

DRUGS (8)
  1. ZOCOR [Suspect]
     Indication: MYOCARDIAL ISCHAEMIA
     Route: 048
     Dates: start: 20010101, end: 20080512
  2. ZOCOR [Suspect]
     Indication: HYPERCHOLESTEROLAEMIA
     Route: 048
     Dates: start: 20010101, end: 20080512
  3. FUSIDIC ACID [Suspect]
     Indication: SEPTIC ARTHRITIS STAPHYLOCOCCAL
     Route: 048
     Dates: start: 20080331, end: 20080512
  4. ATENOLOL [Concomitant]
     Indication: MYOCARDIAL ISCHAEMIA
     Route: 065
  5. AMLODIPINE [Concomitant]
     Indication: HYPERTENSION
     Route: 065
  6. BENDROFLUMETHIAZIDE [Concomitant]
     Indication: HYPERTENSION
     Route: 048
  7. DOXAZOSIN MESYLATE [Concomitant]
     Indication: HYPERTENSION
     Route: 048
  8. RAMIPRIL [Concomitant]
     Indication: MYOCARDIAL ISCHAEMIA
     Route: 048

REACTIONS (8)
  - BLOOD CREATINE PHOSPHOKINASE INCREASED [None]
  - RHABDOMYOLYSIS [None]
  - RENAL FAILURE ACUTE [None]
  - DRUG INTERACTION [None]
  - ASTHENIA [None]
  - HYPOTENSION [None]
  - HYPOXIA [None]
  - MYALGIA [None]
